FAERS Safety Report 11596155 (Version 1)
Quarter: 2015Q4

REPORT INFORMATION
  Report Type: Spontaneous
  Country: US (occurrence: US)
  Receive Date: 20151006
  Receipt Date: 20151006
  Transmission Date: 20160304
  Serious: No
  Sender: FDA-Public Use
  Company Number: US-PERRIGO-15US002832

PATIENT
  Age: 29 Year
  Sex: Female
  Weight: 68.93 kg

DRUGS (1)
  1. NYSTATIN USP NYSTOP RX 100,000 U/G 3W6 [Suspect]
     Active Substance: NYSTATIN
     Indication: ORAL CANDIDIASIS
     Dosage: 1/8 TEASPOON MIXED WITH WATER, SINGLE
     Route: 048
     Dates: start: 20150311, end: 20150311

REACTIONS (4)
  - Chest discomfort [Unknown]
  - Dyspnoea [Unknown]
  - Drug dispensing error [Recovered/Resolved]
  - Incorrect route of drug administration [Recovered/Resolved]

NARRATIVE: CASE EVENT DATE: 20150311
